FAERS Safety Report 22119520 (Version 1)
Quarter: 2023Q1

REPORT INFORMATION
  Report Type: Spontaneous
  Country: US (occurrence: None)
  Receive Date: 20230320
  Receipt Date: 20230320
  Transmission Date: 20230418
  Serious: Yes (Other)
  Sender: FDA-Public Use
  Company Number: None

PATIENT
  Age: 45 Year
  Sex: Male
  Weight: 78.75 kg

DRUGS (5)
  1. SUBOXONE [Suspect]
     Active Substance: BUPRENORPHINE HYDROCHLORIDE\NALOXONE HYDROCHLORIDE
     Indication: Drug withdrawal syndrome
     Dosage: OTHER QUANTITY : 1 3 TIMES DAILY;?FREQUENCY : EVERY 8 HOURS;?
     Route: 060
  2. SUBOXONE [Suspect]
     Active Substance: BUPRENORPHINE HYDROCHLORIDE\NALOXONE HYDROCHLORIDE
     Indication: Pain
  3. GABAPENTIN [Concomitant]
     Active Substance: GABAPENTIN
  4. Trozanadine [Concomitant]
  5. Tens unit [Concomitant]

REACTIONS (1)
  - Tooth loss [None]

NARRATIVE: CASE EVENT DATE: 19770612
